FAERS Safety Report 19812873 (Version 1)
Quarter: 2021Q3

REPORT INFORMATION
  Report Type: Spontaneous
  Country: US (occurrence: US)
  Receive Date: 20210907
  Receipt Date: 20210907
  Transmission Date: 20211014
  Serious: Yes (Hospitalization)
  Sender: FDA-Public Use
  Company Number: None

PATIENT
  Age: 49 Year
  Sex: Female

DRUGS (1)
  1. VUMERITY [Suspect]
     Active Substance: DIROXIMEL FUMARATE
     Indication: RHEUMATOID ARTHRITIS
     Route: 048
     Dates: start: 20210301

REACTIONS (1)
  - Seizure [None]

NARRATIVE: CASE EVENT DATE: 20210810
